FAERS Safety Report 6620927-X (Version None)
Quarter: 2010Q1

REPORT INFORMATION
  Report Type: 
  Country: None (occurrence: None)
  Receive Date: 20100309
  Receipt Date: 20100224
  Transmission Date: 20100710
  Serious: Yes (Hospitalization, Other)
  Sender: FDA-Public Use
  Company Number: CZ-PFIZER INC-2010023679

PATIENT
  Sex: Male

DRUGS (1)
  1. SUNITINIB MALATE [Suspect]
     Indication: METASTASES TO LYMPH NODES
     Dosage: UNK
     Dates: start: 20060701

REACTIONS (3)
  - HYPOTHYROIDISM [None]
  - SKIN EXFOLIATION [None]
  - SKIN FISSURES [None]
